FAERS Safety Report 18714601 (Version 7)
Quarter: 2021Q1

REPORT INFORMATION
  Report Type: Report from Study
  Country: BR (occurrence: BR)
  Receive Date: 20210107
  Receipt Date: 20210203
  Transmission Date: 20210419
  Serious: Yes (Death, Life-Threatening, Hospitalization, Other)
  Sender: FDA-Public Use
  Company Number: BR-GILEAD-2021-0511362

PATIENT
  Age: 67 Year
  Sex: Male
  Weight: 75 kg

DRUGS (56)
  1. DEXAMETHASONE. [Concomitant]
     Active Substance: DEXAMETHASONE
     Indication: COVID-19
     Dosage: 6 MG, QD
     Dates: start: 20201219, end: 20201222
  2. METHYLPREDNISOLONE. [Concomitant]
     Active Substance: METHYLPREDNISOLONE
     Indication: COVID-19
     Dosage: 40 MG
     Dates: start: 20201222
  3. LIDOCAINE. [Concomitant]
     Active Substance: LIDOCAINE
  4. ROCURONIUM [Concomitant]
     Active Substance: ROCURONIUM BROMIDE
  5. OXYGEN. [Concomitant]
     Active Substance: OXYGEN
     Dosage: 50 %
     Route: 007
     Dates: start: 20201223
  6. OXYGEN. [Concomitant]
     Active Substance: OXYGEN
     Dosage: 13 L/MIN
     Route: 055
     Dates: start: 20201223
  7. OXYGEN. [Concomitant]
     Active Substance: OXYGEN
     Dosage: 40 %
     Route: 007
     Dates: start: 20210106
  8. OXYGEN. [Concomitant]
     Active Substance: OXYGEN
     Dosage: 100 %
     Route: 007
     Dates: start: 20201228
  9. OXYGEN. [Concomitant]
     Active Substance: OXYGEN
     Dosage: 12 L/MIN
     Route: 055
     Dates: start: 20210102
  10. OXYGEN. [Concomitant]
     Active Substance: OXYGEN
     Dosage: 08 L/MIN
     Route: 055
     Dates: start: 20201223
  11. OXYGEN. [Concomitant]
     Active Substance: OXYGEN
     Dosage: 09 L/MIN
     Route: 055
     Dates: start: 20201223
  12. OXYGEN. [Concomitant]
     Active Substance: OXYGEN
     Dosage: 15 L/MIN
     Route: 055
     Dates: start: 20210103
  13. OSELTAMIVIR [Concomitant]
     Active Substance: OSELTAMIVIR
     Indication: COVID-19
     Dosage: 75 MG
     Dates: start: 20201222
  14. HALOPERIDOL. [Concomitant]
     Active Substance: HALOPERIDOL
  15. HEPARIN [Suspect]
     Active Substance: HEPARIN SODIUM
     Indication: THROMBOSIS PROPHYLAXIS
     Route: 065
  16. OXYGEN. [Concomitant]
     Active Substance: OXYGEN
     Dosage: 45 L/MIN
     Route: 007
     Dates: start: 20201225
  17. OXYGEN. [Concomitant]
     Active Substance: OXYGEN
     Dosage: 40 %
     Route: 007
     Dates: start: 20201230
  18. OXYGEN. [Concomitant]
     Active Substance: OXYGEN
     Dosage: 13 L/MIN
     Route: 055
     Dates: start: 20201223
  19. OXYGEN. [Concomitant]
     Active Substance: OXYGEN
     Dosage: 40 UNK
     Route: 007
     Dates: start: 20210109
  20. PANTOPRAZOLE [Concomitant]
     Active Substance: PANTOPRAZOLE
     Dosage: 40 MG, QD
     Dates: start: 20201223
  21. INSULIN REGULAR [INSULIN BOVINE] [Concomitant]
     Active Substance: INSULIN BEEF
  22. OXYGEN. [Concomitant]
     Active Substance: OXYGEN
     Dosage: 70 L/MIN
     Route: 007
     Dates: start: 20201226
  23. OXYGEN. [Concomitant]
     Active Substance: OXYGEN
     Dosage: 75 L/MIN
     Route: 055
     Dates: start: 20201226
  24. OXYGEN. [Concomitant]
     Active Substance: OXYGEN
     Dosage: 50 %
     Route: 007
     Dates: start: 20201227
  25. OXYGEN. [Concomitant]
     Active Substance: OXYGEN
     Dosage: 12 L/MIN
     Route: 055
     Dates: start: 20201223
  26. OXYGEN. [Concomitant]
     Active Substance: OXYGEN
     Dosage: 40 %
     Route: 007
     Dates: start: 20201230
  27. OXYGEN. [Concomitant]
     Active Substance: OXYGEN
     Dosage: 50 %
     Route: 007
     Dates: start: 20210105
  28. OXYGEN. [Concomitant]
     Active Substance: OXYGEN
     Dosage: 40 %
     Route: 007
     Dates: start: 20210104
  29. ENOXAPARIN [Concomitant]
     Active Substance: ENOXAPARIN
     Dosage: 40 MG, QD
     Dates: start: 20201222
  30. BROMOPRIDE [Concomitant]
     Active Substance: BROMOPRIDE
     Dosage: 10 MG
     Dates: start: 20201222
  31. DEXTROAMPHETAMINE [DEXAMFETAMINE] [Concomitant]
     Active Substance: DEXTROAMPHETAMINE
  32. REMDESIVIR. [Suspect]
     Active Substance: REMDESIVIR
     Indication: COVID-19 PNEUMONIA
     Dosage: 100 ML, QD, RECENT DOSE OF STUDY DRUG PRIOR TO SERIOUS ADVERSE EVENT 26?DEC?2020
     Route: 042
     Dates: start: 20201223
  33. OXYGEN. [Concomitant]
     Active Substance: OXYGEN
     Dosage: 60 %
     Route: 007
     Dates: start: 20201229
  34. OXYGEN. [Concomitant]
     Active Substance: OXYGEN
     Dosage: 60 %
     Route: 007
     Dates: start: 20201231
  35. OXYGEN. [Concomitant]
     Active Substance: OXYGEN
     Dosage: 70 %
     Route: 007
     Dates: start: 20210104
  36. CEFTRIAXONE. [Concomitant]
     Active Substance: CEFTRIAXONE
     Dosage: 2 G, QD
     Dates: start: 20201222
  37. DIPIRONE [Concomitant]
     Active Substance: METAMIZOLE SODIUM
     Indication: COVID-19
     Dosage: 500 MG
     Dates: start: 20201222
  38. BERMUTH SUBGALATE [Concomitant]
  39. OXYGEN. [Concomitant]
     Active Substance: OXYGEN
     Dosage: 50 L/MIN25/DEC/2020, 24/DEC/2020
     Route: 055
     Dates: start: 20201224
  40. OXYGEN. [Concomitant]
     Active Substance: OXYGEN
     Dosage: 80 %
     Route: 007
     Dates: start: 20201228
  41. OXYGEN. [Concomitant]
     Active Substance: OXYGEN
     Dosage: 40 UNK
     Route: 007
     Dates: start: 20201229
  42. OXYGEN. [Concomitant]
     Active Substance: OXYGEN
     Dosage: 40 %
     Route: 007
     Dates: start: 20210107
  43. OXYGEN. [Concomitant]
     Active Substance: OXYGEN
     Dosage: 50 %
     Route: 007
     Dates: start: 20210104
  44. OXYGEN. [Concomitant]
     Active Substance: OXYGEN
     Dosage: 35 %
     Route: 007
     Dates: start: 20210106
  45. OXYGEN. [Concomitant]
     Active Substance: OXYGEN
     Dosage: 40 UNK
     Route: 007
     Dates: start: 20210108
  46. OXYGEN. [Concomitant]
     Active Substance: OXYGEN
     Dosage: 50 UNK
     Route: 007
     Dates: start: 20200108
  47. NORADRENALINE (NORPINEPHRINE) [Concomitant]
     Active Substance: NOREPINEPHRINE
     Indication: COVID-19 PNEUMONIA
     Dosage: 20 ML
     Dates: start: 20201228
  48. ENCRISE [Concomitant]
     Dosage: UNK
     Dates: start: 20201228
  49. OXYGEN. [Concomitant]
     Active Substance: OXYGEN
     Dosage: 45 %
     Route: 007
     Dates: start: 20201231
  50. OXYGEN. [Concomitant]
     Active Substance: OXYGEN
     Dosage: 40 %
     Route: 007
     Dates: start: 20210107
  51. AZITHROMYCIN ANHYDROUS. [Concomitant]
     Active Substance: AZITHROMYCIN ANHYDROUS
     Dosage: 500 MG, QD
     Dates: start: 20201219, end: 20201222
  52. PLACEBO [Suspect]
     Active Substance: UNSPECIFIED INGREDIENT
     Indication: COVID-19 PNEUMONIA
     Dosage: DATE OF MOST RECENT DOSE OF STUDY DRUG PRIOR TO SERIOUS ADVERSE EVENT 23?DEC?2020
     Route: 042
     Dates: start: 20201223
  53. OXYGEN. [Concomitant]
     Active Substance: OXYGEN
     Dosage: 60 L/MIN
     Route: 007
     Dates: start: 20201227
  54. OXYGEN. [Concomitant]
     Active Substance: OXYGEN
     Dosage: 02 L/MIN
     Route: 055
     Dates: start: 20210102
  55. OXYGEN. [Concomitant]
     Active Substance: OXYGEN
     Dosage: 04 L/MIN
     Route: 055
     Dates: start: 20210103
  56. OXYGEN. [Concomitant]
     Active Substance: OXYGEN
     Dosage: 45 UNK
     Route: 007
     Dates: start: 20210109

REACTIONS (4)
  - Post procedural haemorrhage [Recovering/Resolving]
  - Acute kidney injury [Recovering/Resolving]
  - Septic shock [Recovering/Resolving]
  - Pneumonia [Recovered/Resolved]

NARRATIVE: CASE EVENT DATE: 20201226
